FAERS Safety Report 6667931-3 (Version None)
Quarter: 2010Q2

REPORT INFORMATION
  Report Type: 
  Country: None (occurrence: None)
  Receive Date: 20100405
  Receipt Date: 20100326
  Transmission Date: 20101027
  Serious: Yes (Other)
  Sender: FDA-Public Use
  Company Number: DK-ABBOTT-10P-044-0629208-00

PATIENT
  Sex: Female

DRUGS (5)
  1. HUMIRA [Suspect]
     Indication: RHEUMATOID ARTHRITIS
     Route: 058
     Dates: start: 20071119, end: 20100219
  2. ALENDRONIC ACID [Concomitant]
     Indication: OSTEOPOROSIS
     Dates: start: 20020101
  3. WARFARIN (MAREVAN) NYCOMED DANMARK APS [Concomitant]
     Indication: THROMBOSIS PROPHYLAXIS
     Dates: start: 20070101
  4. TRAMADOL (DOLOL) NYCOMED APS [Concomitant]
     Indication: PAIN
     Dates: start: 20000101
  5. CALCIUM WITH VITAMIN D [Concomitant]
     Indication: DRUG USE FOR UNKNOWN INDICATION

REACTIONS (1)
  - AUTOIMMUNE HEPATITIS [None]
